FAERS Safety Report 18339126 (Version 1)
Quarter: 2020Q4

REPORT INFORMATION
  Report Type: Spontaneous
  Country: DE (occurrence: DE)
  Receive Date: 20201002
  Receipt Date: 20201002
  Transmission Date: 20210113
  Serious: Yes (Life-Threatening, Hospitalization)
  Sender: FDA-Public Use
  Company Number: DE-MYLANLABS-2020M1083745

PATIENT
  Age: 48 Year
  Sex: Male

DRUGS (11)
  1. DIMETINDENE [Suspect]
     Active Substance: DIMETHINDENE
     Indication: CARDIAC ARREST
  2. HYDROCORTISONE. [Suspect]
     Active Substance: HYDROCORTISONE
     Indication: CAPILLARY LEAK SYNDROME
     Dosage: CONTINUOUS
     Route: 042
  3. EPINEPHRINE. [Suspect]
     Active Substance: EPINEPHRINE
     Indication: CARDIAC ARREST
  4. NITRIC OXIDE. [Suspect]
     Active Substance: NITRIC OXIDE
     Indication: CARDIAC ARREST
  5. DIMETINDENE [Suspect]
     Active Substance: DIMETHINDENE
     Indication: CONTRAST MEDIA ALLERGY
     Dosage: 8 MILLIGRAM
     Route: 065
  6. PREDNISOLONE. [Suspect]
     Active Substance: PREDNISOLONE
     Indication: CARDIAC ARREST
     Dosage: 750 MILLIGRAM
     Route: 042
  7. NITRIC OXIDE. [Suspect]
     Active Substance: NITRIC OXIDE
     Indication: RESPIRATORY FAILURE
     Dosage: UP TO 7 PPM
  8. SALINE                             /00075401/ [Concomitant]
     Active Substance: SODIUM CHLORIDE
     Indication: VASCULAR TEST
     Dosage: 100 MILLILITER ISOTONIC
     Route: 065
  9. IMERON [Concomitant]
     Active Substance: IOMEPROL
     Indication: VASCULAR TEST
     Dosage: 70 MILLILITER FLOW SPEED 5.8 ML/S
     Route: 065
  10. EPINEPHRINE. [Suspect]
     Active Substance: EPINEPHRINE
     Indication: HYPOTENSION
     Dosage: 1.5 MILLIGRAM BOLUS
     Route: 065
  11. PREDNISOLONE. [Suspect]
     Active Substance: PREDNISOLONE
     Indication: CONTRAST MEDIA ALLERGY
     Dosage: 250 MILLIGRAM
     Route: 065

REACTIONS (1)
  - Drug ineffective [Unknown]
